FAERS Safety Report 13524557 (Version 1)
Quarter: 2017Q2

REPORT INFORMATION
  Report Type: Spontaneous
  Country: US (occurrence: US)
  Receive Date: 20170508
  Receipt Date: 20170508
  Transmission Date: 20170830
  Serious: Yes (Other)
  Sender: FDA-Public Use
  Company Number: US-PFIZER INC-2017200906

PATIENT
  Age: 58 Year
  Sex: Female

DRUGS (2)
  1. EPIPEN [Suspect]
     Active Substance: EPINEPHRINE
     Indication: ASTHMA
     Dosage: 0.3 MG, ONCE
     Route: 030
     Dates: start: 20170423, end: 20170423
  2. PREDNISONE. [Suspect]
     Active Substance: PREDNISONE
     Indication: ASTHMA
     Dosage: 5 MG, PRN
     Dates: start: 20170423, end: 20170423

REACTIONS (3)
  - Drug ineffective for unapproved indication [Recovered/Resolved]
  - Injection site pain [Not Recovered/Not Resolved]
  - Musculoskeletal stiffness [Not Recovered/Not Resolved]

NARRATIVE: CASE EVENT DATE: 20170423
